FAERS Safety Report 5391607-6 (Version None)
Quarter: 2007Q3

REPORT INFORMATION
  Report Type: 
  Country: None (occurrence: None)
  Receive Date: 20070719
  Receipt Date: 20070713
  Transmission Date: 20080115
  Serious: Yes (Other)
  Sender: FDA-Public Use
  Company Number: US-GENENTECH-244523

PATIENT
  Age: 63 Year
  Sex: Female

DRUGS (1)
  1. RITUXAN [Suspect]
     Indication: IDIOPATHIC THROMBOCYTOPENIC PURPURA
     Dosage: UNK, 1/WEEK
     Dates: start: 20070628

REACTIONS (1)
  - PLATELET COUNT DECREASED [None]
